FAERS Safety Report 25107571 (Version 1)
Quarter: 2025Q1

REPORT INFORMATION
  Report Type: Spontaneous
  Country: JP (occurrence: JP)
  Receive Date: 20250321
  Receipt Date: 20250321
  Transmission Date: 20250408
  Serious: Yes (Other)
  Sender: MERCK SHARP & DOHME LLC
  Company Number: JP-009507513-2266627

PATIENT
  Age: 72 Year
  Sex: Female

DRUGS (2)
  1. PEMBROLIZUMAB [Suspect]
     Active Substance: PEMBROLIZUMAB
     Indication: Uterine cancer
  2. LENVATINIB [Concomitant]
     Active Substance: LENVATINIB
     Indication: Uterine cancer
     Route: 048

REACTIONS (4)
  - Renal impairment [Recovering/Resolving]
  - Immune-mediated dermatitis [Recovering/Resolving]
  - Inflammation [Recovering/Resolving]
  - Platelet count decreased [Recovering/Resolving]
